FAERS Safety Report 8613108-1 (Version None)
Quarter: 2012Q3

REPORT INFORMATION
  Report Type: 
  Country: None (occurrence: None)
  Receive Date: 20120822
  Receipt Date: 20120727
  Transmission Date: 20120928
  Serious: Yes (Hospitalization)
  Sender: FDA-Public Use
  Company Number: JP-009507513-1207JPN008155

PATIENT

DRUGS (12)
  1. REBETOL [Suspect]
     Route: 048
     Dates: start: 20120607, end: 20120613
  2. REBETOL [Suspect]
     Route: 048
     Dates: start: 20120712
  3. TELAVIC [Suspect]
     Indication: HEPATITIS C
     Route: 048
     Dates: start: 20120517, end: 20120606
  4. PEG-INTRON [Suspect]
     Indication: HEPATITIS C
     Dosage: 1.5MCG/KG/WEEK
     Route: 058
     Dates: start: 20120517
  5. PEG-INTRON [Suspect]
     Route: 058
     Dates: start: 20120712
  6. TELAVIC [Suspect]
     Route: 048
     Dates: start: 20120607, end: 20120703
  7. TELAVIC [Suspect]
     Route: 048
     Dates: start: 20120705
  8. REBETOL [Suspect]
     Indication: HEPATITIS C
     Route: 048
     Dates: start: 20120517, end: 20120606
  9. REBETOL [Suspect]
     Route: 048
     Dates: start: 20120614
  10. REBETOL [Suspect]
     Route: 048
     Dates: start: 20120607, end: 20120613
  11. REBETOL [Suspect]
     Route: 048
     Dates: start: 20120614
  12. TELAVIC [Suspect]
     Route: 048
     Dates: start: 20120607, end: 20120705

REACTIONS (3)
  - RASH GENERALISED [None]
  - DRUG RASH WITH EOSINOPHILIA AND SYSTEMIC SYMPTOMS [None]
  - GENERALISED ERYTHEMA [None]
